FAERS Safety Report 25414105 (Version 1)
Quarter: 2025Q2

REPORT INFORMATION
  Report Type: Spontaneous
  Country: CN (occurrence: CN)
  Receive Date: 20250609
  Receipt Date: 20250609
  Transmission Date: 20250717
  Serious: Yes (Hospitalization)
  Sender: PURDUE
  Company Number: CN-PURDUE-USA-2025-0317953

PATIENT
  Age: 23 Year
  Sex: Female

DRUGS (14)
  1. SCOPOLAMINE [Suspect]
     Active Substance: SCOPOLAMINE
     Indication: Dystonia
     Route: 042
  2. SCOPOLAMINE [Suspect]
     Active Substance: SCOPOLAMINE
     Indication: Manic symptom
     Route: 042
  3. HALOPERIDOL [Suspect]
     Active Substance: HALOPERIDOL
     Indication: Agitation
     Dosage: 20 MILLIGRAM, DAILY (TITRATED UP TO 20 MG/D)
     Route: 065
  4. HALOPERIDOL [Suspect]
     Active Substance: HALOPERIDOL
     Indication: Manic symptom
     Dosage: 20 MILLIGRAM, DAILY
     Route: 065
  5. TRIHEXYPHENIDYL [Suspect]
     Active Substance: TRIHEXYPHENIDYL
     Indication: Dystonia
     Route: 048
  6. TRIHEXYPHENIDYL [Suspect]
     Active Substance: TRIHEXYPHENIDYL
     Indication: Manic symptom
  7. OLANZAPINE [Suspect]
     Active Substance: OLANZAPINE
     Indication: Manic symptom
     Dosage: 7.5 MILLIGRAM, DAILY
     Route: 065
  8. OLANZAPINE [Suspect]
     Active Substance: OLANZAPINE
     Dosage: 15 MILLIGRAM, DAILY
     Route: 065
  9. OLANZAPINE [Suspect]
     Active Substance: OLANZAPINE
     Dosage: 20 MILLIGRAM, DAILY (INCREASED)
     Route: 065
  10. LORAZEPAM [Suspect]
     Active Substance: LORAZEPAM
     Indication: Manic symptom
     Dosage: 2.5 MILLIGRAM, DAILY
     Route: 065
  11. LORAZEPAM [Suspect]
     Active Substance: LORAZEPAM
     Dosage: 5 MILLIGRAM, DAILY
     Route: 065
  12. LORAZEPAM [Suspect]
     Active Substance: LORAZEPAM
     Dosage: 1 MILLIGRAM, DAILY
     Route: 065
  13. VALPROATE SODIUM [Suspect]
     Active Substance: VALPROATE SODIUM
     Indication: Affective disorder
     Route: 065
  14. VENLAFAXINE [Suspect]
     Active Substance: VENLAFAXINE HYDROCHLORIDE
     Indication: Affective disorder
     Dosage: 225 MILLIGRAM, DAILY
     Route: 065

REACTIONS (2)
  - Parkinsonism [Recovering/Resolving]
  - Product use in unapproved indication [Unknown]
